FAERS Safety Report 11392387 (Version 1)
Quarter: 2015Q3

REPORT INFORMATION
  Report Type: Report from Study
  Country: FR (occurrence: FR)
  Receive Date: 20150818
  Receipt Date: 20150818
  Transmission Date: 20151125
  Serious: Yes (Death, Hospitalization, Other)
  Sender: FDA-Public Use
  Company Number: FR-CELGENE-FRA-2015082139

PATIENT

DRUGS (4)
  1. REVLIMID [Suspect]
     Active Substance: LENALIDOMIDE
     Indication: ACUTE MYELOID LEUKAEMIA
     Route: 048
  2. REVLIMID [Suspect]
     Active Substance: LENALIDOMIDE
     Route: 048
  3. AZACITIDINE. [Suspect]
     Active Substance: AZACITIDINE
     Route: 058
  4. AZACITIDINE. [Suspect]
     Active Substance: AZACITIDINE
     Indication: ACUTE MYELOID LEUKAEMIA
     Route: 058

REACTIONS (16)
  - Platelet count decreased [Unknown]
  - Pseudomembranous colitis [Unknown]
  - Cardiac disorder [Unknown]
  - Red blood cell count decreased [Unknown]
  - Depression [Unknown]
  - Infection [Fatal]
  - Atrial fibrillation [Unknown]
  - Febrile neutropenia [Unknown]
  - Neutropenia [Unknown]
  - Pyrexia [Unknown]
  - Thrombocytopenia [Unknown]
  - Vascular purpura [Unknown]
  - Acute myeloid leukaemia recurrent [Unknown]
  - Multi-organ failure [Fatal]
  - Sudden death [Fatal]
  - Cerebral haemorrhage [Fatal]
